FAERS Safety Report 13637635 (Version 3)
Quarter: 2017Q2

REPORT INFORMATION
  Report Type: Report from Study
  Country: None (occurrence: BE)
  Receive Date: 20170609
  Receipt Date: 20170627
  Transmission Date: 20170830
  Serious: Yes (Hospitalization)
  Sender: FDA-Public Use
  Company Number: BE-ABBVIE-17K-013-2001931-00

PATIENT
  Sex: Male

DRUGS (5)
  1. DUODOPA [Suspect]
     Active Substance: CARBIDOPA\LEVODOPA
     Dosage: MD= 0.5 ML; CD= 2.2 ML/H DURING 16 HRS; EDA= 2 ML
     Route: 050
     Dates: start: 20170609
  2. DUODOPA [Suspect]
     Active Substance: CARBIDOPA\LEVODOPA
     Indication: PARKINSON^S DISEASE
     Dosage: UNKNOWN DOSAGE
     Route: 050
     Dates: start: 20100907, end: 20100915
  3. DUODOPA [Suspect]
     Active Substance: CARBIDOPA\LEVODOPA
     Dosage: MD= 7 ML; CD= 3.1 ML/H DURING 16 HRS; EDA= 2 ML
     Route: 050
     Dates: start: 20100915, end: 20170110
  4. DUODOPA [Suspect]
     Active Substance: CARBIDOPA\LEVODOPA
     Dosage: MD= 0.5 ML; CD= 3.8 ML/H DURING 16 HRS; EDA= 2 ML
     Route: 050
     Dates: start: 20170110, end: 20170606
  5. DUODOPA [Suspect]
     Active Substance: CARBIDOPA\LEVODOPA
     Dosage: MD= 0.5 ML; CD= 2.4 ML/H DURING 16 HRS; EDA= 2 ML
     Route: 050
     Dates: start: 20170606, end: 20170609

REACTIONS (7)
  - Mobility decreased [Unknown]
  - Device occlusion [Unknown]
  - Fall [Unknown]
  - Device dislocation [Recovered/Resolved]
  - Balance disorder [Recovering/Resolving]
  - Incorrect route of drug administration [Unknown]
  - Dyskinesia [Recovering/Resolving]
